FAERS Safety Report 20786801 (Version 2)
Quarter: 2025Q1

REPORT INFORMATION
  Report Type: Spontaneous
  Country: US (occurrence: US)
  Receive Date: 20220505
  Receipt Date: 20250330
  Transmission Date: 20250408
  Serious: No
  Sender: SANOFI AVENTIS
  Company Number: US-SA-SAC20220429000202

PATIENT
  Age: 75 Year
  Sex: Female

DRUGS (7)
  1. DUPIXENT [Suspect]
     Active Substance: DUPILUMAB
     Indication: Dermatitis atopic
     Dosage: 300 MG, QOW
     Route: 058
     Dates: start: 20200410
  2. ATORVASTATIN [Concomitant]
     Active Substance: ATORVASTATIN
  3. DILTIAZEM [Concomitant]
     Active Substance: DILTIAZEM
  4. ELIQUIS [Concomitant]
     Active Substance: APIXABAN
  5. ENALAPRIL [Concomitant]
     Active Substance: ENALAPRIL
  6. METOPROLOL SUCCINATE [Concomitant]
     Active Substance: METOPROLOL SUCCINATE
  7. EUCRISA [Concomitant]
     Active Substance: CRISABOROLE

REACTIONS (4)
  - Discomfort [Unknown]
  - Sleep disorder [Unknown]
  - Rash [Unknown]
  - Dermatitis atopic [Not Recovered/Not Resolved]

NARRATIVE: CASE EVENT DATE: 20240901
